FAERS Safety Report 7306246-7 (Version None)
Quarter: 2011Q1

REPORT INFORMATION
  Report Type: 
  Country: None (occurrence: None)
  Receive Date: 20110119
  Receipt Date: 20101115
  Transmission Date: 20110831
  Serious: Yes (Hospitalization)
  Sender: FDA-Public Use
  Company Number: A-US2006-13867

PATIENT
  Age: 57 Year
  Sex: Female

DRUGS (3)
  1. TADALAFIL [Concomitant]
  2. COUMADIN [Concomitant]
  3. TRACLEER [Suspect]
     Indication: PULMONARY HYPERTENSION
     Dosage: ORAL
     Route: 048
     Dates: start: 20060714

REACTIONS (11)
  - RHINORRHOEA [None]
  - DYSPNOEA [None]
  - FATIGUE [None]
  - INSOMNIA [None]
  - CHEST PAIN [None]
  - NASAL CONGESTION [None]
  - CHEST DISCOMFORT [None]
  - OEDEMA PERIPHERAL [None]
  - BACK PAIN [None]
  - NASOPHARYNGITIS [None]
  - PYREXIA [None]
